FAERS Safety Report 7959602-8 (Version None)
Quarter: 2011Q4

REPORT INFORMATION
  Report Type: 
  Country: None (occurrence: None)
  Receive Date: 20111206
  Receipt Date: 20111129
  Transmission Date: 20120403
  Serious: Yes (Hospitalization)
  Sender: FDA-Public Use
  Company Number: DE-UCBSA-046763

PATIENT
  Age: 45 Year
  Sex: Female

DRUGS (5)
  1. CIMZIA [Suspect]
     Indication: RHEUMATOID ARTHRITIS
     Route: 058
     Dates: end: 20110124
  2. ARAVA [Suspect]
     Indication: RHEUMATOID ARTHRITIS
     Dates: start: 20040101, end: 20110301
  3. PREDNISOLONE [Concomitant]
     Dosage: 10 MG
     Dates: start: 20100601, end: 20110101
  4. CARBAMAZEPINE [Suspect]
     Dates: start: 20110101, end: 20110201
  5. CARBAMAZEPINE [Suspect]
     Dates: start: 20101101, end: 20110101

REACTIONS (1)
  - PULMONARY TUBERCULOSIS [None]
